FAERS Safety Report 6181320-X (Version None)
Quarter: 2009Q2

REPORT INFORMATION
  Report Type: 
  Country: None (occurrence: None)
  Receive Date: 20090506
  Receipt Date: 20090428
  Transmission Date: 20091009
  Serious: Yes (Death, Other)
  Sender: FDA-Public Use
  Company Number: US-CELGENEUS-163-21880-09040040

PATIENT
  Sex: Male

DRUGS (2)
  1. REVLIMID [Suspect]
     Indication: MULTIPLE MYELOMA
     Route: 048
     Dates: start: 20090206, end: 20090324
  2. REVLIMID [Suspect]
     Indication: AMYLOIDOSIS

REACTIONS (4)
  - AMYLOIDOSIS [None]
  - CARDIAC FAILURE [None]
  - PULMONARY EMBOLISM [None]
  - RENAL FAILURE [None]
